FAERS Safety Report 8301762-3 (Version None)
Quarter: 2012Q2

REPORT INFORMATION
  Report Type: 
  Country: None (occurrence: None)
  Receive Date: 20120420
  Receipt Date: 20120411
  Transmission Date: 20120825
  Serious: Yes (Other)
  Sender: FDA-Public Use
  Company Number: US-JNJFOC-20120405340

PATIENT
  Sex: Female
  Weight: 142.3 kg

DRUGS (3)
  1. TYLENOL (CAPLET) [Concomitant]
     Indication: PREMEDICATION
     Route: 065
  2. METHYLPREDNISOLONE [Concomitant]
     Indication: PREMEDICATION
     Route: 065
  3. REMICADE [Suspect]
     Indication: PSORIATIC ARTHROPATHY
     Route: 042
     Dates: end: 20120404

REACTIONS (10)
  - FLUSHING [None]
  - NAUSEA [None]
  - CHEST PAIN [None]
  - ADVERSE EVENT [None]
  - DIZZINESS [None]
  - OXYGEN SATURATION DECREASED [None]
  - HEADACHE [None]
  - DYSPNOEA [None]
  - PALPITATIONS [None]
  - INFUSION RELATED REACTION [None]
